FAERS Safety Report 19154226 (Version 2)
Quarter: 2021Q2

REPORT INFORMATION
  Report Type: Spontaneous
  Country: ES (occurrence: ES)
  Receive Date: 20210419
  Receipt Date: 20210426
  Transmission Date: 20210717
  Serious: Yes (Hospitalization, Other)
  Sender: FDA-Public Use
  Company Number: ES-ALXN-A202104598

PATIENT
  Age: 68 Year
  Sex: Female

DRUGS (6)
  1. ACENOCOUMAROL [Concomitant]
     Active Substance: ACENOCOUMAROL
     Indication: PRODUCT USED FOR UNKNOWN INDICATION
     Route: 065
  2. SOLIRIS [Suspect]
     Active Substance: ECULIZUMAB
     Dosage: 1200 MG, Q2W
     Route: 042
  3. BISOPROLOL [Concomitant]
     Active Substance: BISOPROLOL
     Indication: PRODUCT USED FOR UNKNOWN INDICATION
     Route: 065
  4. PANTOPRAZOLE [Concomitant]
     Active Substance: PANTOPRAZOLE
     Indication: PRODUCT USED FOR UNKNOWN INDICATION
     Route: 065
  5. SOLIRIS [Suspect]
     Active Substance: ECULIZUMAB
     Indication: PAROXYSMAL NOCTURNAL HAEMOGLOBINURIA
     Dosage: UNK
     Route: 042
     Dates: start: 200509
  6. ELTROMBOPAG [Concomitant]
     Active Substance: ELTROMBOPAG
     Indication: PRODUCT USED FOR UNKNOWN INDICATION
     Route: 065

REACTIONS (5)
  - Gastroenteritis salmonella [Recovered/Resolved]
  - COVID-19 pneumonia [Recovered/Resolved]
  - Hypovolaemic shock [Recovered/Resolved]
  - Clostridium difficile colitis [Recovered/Resolved]
  - SARS-CoV-2 test positive [Unknown]

NARRATIVE: CASE EVENT DATE: 20201215
